FAERS Safety Report 10238798 (Version 2)
Quarter: 2014Q3

REPORT INFORMATION
  Report Type: Spontaneous
  Country: US (occurrence: US)
  Receive Date: 20140616
  Receipt Date: 20140904
  Transmission Date: 20150326
  Serious: Yes (Hospitalization)
  Sender: FDA-Public Use
  Company Number: US-BAYER-2014-090266

PATIENT
  Age: 21 Year
  Sex: Female
  Weight: 62.59 kg

DRUGS (4)
  1. YASMIN [Suspect]
     Active Substance: DROSPIRENONE\ETHINYL ESTRADIOL
     Dosage: UNK
     Dates: start: 2006, end: 200801
  2. ZITHROMAX [Concomitant]
     Active Substance: AZITHROMYCIN DIHYDRATE
     Dosage: UNK
     Route: 048
     Dates: start: 20080119
  3. LORTAB [Concomitant]
     Active Substance: ACETAMINOPHEN\HYDROCODONE BITARTRATE
     Indication: PAIN
     Dosage: UNK, PRN EVERY 4 HOURS
     Route: 048
     Dates: start: 20080119
  4. YAZ [Suspect]
     Active Substance: DROSPIRENONE\ETHINYL ESTRADIOL
     Dosage: UNK
     Dates: start: 2006, end: 200801

REACTIONS (10)
  - Injury [Recovering/Resolving]
  - Pain [Recovering/Resolving]
  - Emotional distress [None]
  - Anhedonia [None]
  - Pelvic venous thrombosis [Recovering/Resolving]
  - Deep vein thrombosis [None]
  - Psychological trauma [None]
  - Fear of disease [None]
  - Pulmonary embolism [Recovered/Resolved]
  - Anxiety [None]

NARRATIVE: CASE EVENT DATE: 20080118
